FAERS Safety Report 12473052 (Version 1)
Quarter: 2016Q2

REPORT INFORMATION
  Report Type: Spontaneous
  Country: US (occurrence: US)
  Receive Date: 20160616
  Receipt Date: 20160616
  Transmission Date: 20160815
  Serious: No
  Sender: FDA-Public Use
  Company Number: US-BAYER-2016-117916

PATIENT
  Sex: Female
  Weight: 58.95 kg

DRUGS (3)
  1. MIRALAX [Suspect]
     Active Substance: POLYETHYLENE GLYCOL 3350
     Indication: INTESTINAL OBSTRUCTION
     Dosage: 1 DF, QD
     Route: 048
  2. CALCIUM [Concomitant]
     Active Substance: CALCIUM
  3. VITAMIN D [Concomitant]
     Active Substance: CHOLECALCIFEROL

REACTIONS (2)
  - Product use issue [None]
  - Off label use [None]
